FAERS Safety Report 5406564-3 (Version None)
Quarter: 2007Q3

REPORT INFORMATION
  Report Type: 
  Country: None (occurrence: None)
  Receive Date: 20070806
  Receipt Date: 20070727
  Transmission Date: 20080115
  Serious: Yes (Hospitalization, Other)
  Sender: FDA-Public Use
  Company Number: US-PFIZER INC-2007054542

PATIENT
  Sex: Male
  Weight: 121 kg

DRUGS (9)
  1. SUTENT [Suspect]
     Indication: PROSTATE CANCER
     Route: 048
     Dates: start: 20070619, end: 20070703
  2. TAXOTERE [Suspect]
     Indication: PROSTATE CANCER
     Route: 042
     Dates: start: 20070619, end: 20070619
  3. ACTOS [Concomitant]
     Indication: DIABETES MELLITUS
     Route: 048
  4. GLUCOPHAGE [Concomitant]
     Route: 048
     Dates: start: 20050101
  5. GLUCOTROL [Concomitant]
     Route: 048
     Dates: start: 20050101
  6. DITROPAN [Concomitant]
     Indication: NOCTURIA
     Route: 048
     Dates: start: 20060601
  7. LUPRON [Concomitant]
     Route: 030
     Dates: start: 20050519
  8. LOPERAMIDE HCL [Concomitant]
     Indication: DIARRHOEA
     Route: 048
     Dates: start: 20070622, end: 20070622
  9. INSULIN [Concomitant]
     Route: 058
     Dates: start: 20070701, end: 20070702

REACTIONS (4)
  - CHILLS [None]
  - CHOLESTASIS [None]
  - PYREXIA [None]
  - TRANSAMINASES INCREASED [None]
